FAERS Safety Report 9068667 (Version 1)
Quarter: 2013Q1

REPORT INFORMATION
  Report Type: Spontaneous
  Country: US (occurrence: None)
  Receive Date: 20130212
  Receipt Date: 20130212
  Transmission Date: 20140127
  Serious: Yes (Disabling, Other)
  Sender: FDA-Public Use
  Company Number: None

PATIENT
  Age: 62 Year
  Sex: Male
  Weight: 79.38 kg

DRUGS (1)
  1. VICKS VAPORUB [Suspect]
     Indication: ONYCHOMYCOSIS
     Dosage: SMALL AMOUNT ON TOES DAILY TRANSDERMAL
     Route: 062
     Dates: start: 20120315, end: 20120615

REACTIONS (3)
  - Hypoaesthesia [None]
  - Hypoaesthesia [None]
  - Muscular weakness [None]
